FAERS Safety Report 6063310-0 (Version None)
Quarter: 2009Q1

REPORT INFORMATION
  Report Type: 
  Country: None (occurrence: None)
  Receive Date: 20090203
  Receipt Date: 20090123
  Transmission Date: 20090719
  Serious: Yes (Other)
  Sender: FDA-Public Use
  Company Number: JP-SANOFI-SYNTHELABO-A01200900937

PATIENT
  Sex: Male
  Weight: 63 kg

DRUGS (21)
  1. FLUOROURACIL [Concomitant]
     Indication: RECTAL CANCER
     Dosage: 675MG/BODY (400MG/M2) IN BOLUS THEN 4000MG/BODY/D1-2 (2400MG/M2/D1-2)
     Route: 040
     Dates: start: 20081219, end: 20081219
  2. FLUOROURACIL [Concomitant]
     Route: 041
     Dates: start: 20081219, end: 20081219
  3. ISOVORIN [Concomitant]
     Indication: RECTAL CANCER
     Route: 041
     Dates: start: 20081219, end: 20081219
  4. ELPLAT [Suspect]
     Indication: RECTAL CANCER
     Route: 041
     Dates: start: 20081121, end: 20081121
  5. HIRUDOID [Concomitant]
     Indication: SKIN REACTION
     Dosage: UNK
     Dates: start: 20081219
  6. GARASONE [Concomitant]
     Indication: SKIN REACTION
     Dosage: UNK
     Dates: start: 20081219
  7. LIVALO [Concomitant]
     Indication: HYPERLIPIDAEMIA
     Route: 048
     Dates: start: 20081120
  8. UREPEARL L [Concomitant]
     Indication: SKIN REACTION
     Dosage: UNK
     Dates: start: 20080808
  9. BEZAFIBRATE [Concomitant]
     Indication: HYPERLIPIDAEMIA
     Route: 048
     Dates: start: 20080701, end: 20081119
  10. LOPEMIN [Concomitant]
     Indication: PROPHYLAXIS AGAINST DIARRHOEA
     Dosage: UNK
     Route: 048
     Dates: start: 20080704
  11. SELBEX [Concomitant]
     Indication: GASTRITIS PROPHYLAXIS
     Dosage: UNK
     Route: 048
     Dates: start: 20080606
  12. LOXONIN [Concomitant]
     Indication: PROCTALGIA
     Dosage: UNK
     Route: 048
     Dates: start: 20080606
  13. BIOFERMIN [Concomitant]
     Indication: PROPHYLAXIS AGAINST DIARRHOEA
     Route: 048
     Dates: start: 20080606, end: 20090108
  14. AZUNOL [Concomitant]
     Indication: PROCTALGIA
     Dosage: UNK
     Dates: start: 20080530
  15. POSTERISAN [Concomitant]
     Indication: PROCTALGIA
     Dates: start: 20080530, end: 20080805
  16. KENALOG [Concomitant]
     Indication: STOMATITIS
     Dosage: UNK
     Dates: start: 20080530
  17. TEGRETOL [Concomitant]
     Indication: NEUROPATHY PERIPHERAL
     Route: 048
     Dates: start: 20080523, end: 20090108
  18. MAGMITT [Concomitant]
     Indication: CONSTIPATION PROPHYLAXIS
     Route: 048
     Dates: start: 20080505
  19. DEXART [Concomitant]
     Indication: PREMEDICATION
     Route: 042
     Dates: start: 20080523, end: 20081219
  20. KYTRIL [Concomitant]
     Indication: PREMEDICATION
     Route: 042
     Dates: start: 20080523, end: 20081219
  21. CEDIRANIB [Concomitant]
     Indication: RECTAL CANCER
     Route: 048
     Dates: start: 20080523, end: 20090108

REACTIONS (3)
  - BILE DUCT CANCER [None]
  - BLOOD ALKALINE PHOSPHATASE INCREASED [None]
  - NEUROPATHY PERIPHERAL [None]
